FAERS Safety Report 7757455-4 (Version None)
Quarter: 2011Q3

REPORT INFORMATION
  Report Type: 
  Country: None (occurrence: None)
  Receive Date: 20110916
  Receipt Date: 20110909
  Transmission Date: 20111222
  Serious: Yes (Hospitalization, Other)
  Sender: FDA-Public Use
  Company Number: US-ABBOTT-11P-163-0854762-00

PATIENT
  Age: 36 Year
  Sex: Female

DRUGS (6)
  1. B-12 INJECTIOINS [Concomitant]
     Indication: PRODUCT USED FOR UNKNOWN INDICATION
     Dosage: MONTHLY
  2. HUMIRA [Suspect]
     Dates: start: 20110826
  3. NORTRIPTYLINE HCL [Concomitant]
     Indication: TENSION HEADACHE
  4. IMURAN [Concomitant]
     Indication: PRODUCT USED FOR UNKNOWN INDICATION
  5. HUMIRA [Suspect]
     Indication: CROHN'S DISEASE
     Dates: start: 20110201
  6. POTASSIUM [Concomitant]
     Indication: PRODUCT USED FOR UNKNOWN INDICATION
     Route: 048

REACTIONS (6)
  - CROHN'S DISEASE [None]
  - DIARRHOEA [None]
  - INJECTION SITE PAIN [None]
  - LOSS OF EMPLOYMENT [None]
  - ABDOMINAL PAIN [None]
  - ELECTROLYTE IMBALANCE [None]
